FAERS Safety Report 6398908-3 (Version None)
Quarter: 2009Q4

REPORT INFORMATION
  Report Type: 
  Country: None (occurrence: None)
  Receive Date: 20091007
  Receipt Date: 20090928
  Transmission Date: 20100525
  Serious: Yes (Death)
  Sender: FDA-Public Use
  Company Number: 391760

PATIENT
  Age: 73 Year
  Sex: Male
  Weight: 65 kg

DRUGS (6)
  1. THIOPENTAL SODIUM [Suspect]
     Indication: STATUS EPILEPTICUS
     Dosage: TOTAL DOSE; 303 MG/KG,INTRAVENOUS DRIP
     Route: 041
  2. LORAZEPAM [Concomitant]
  3. PHENYTOIN [Concomitant]
  4. VALPROATE SODIUM [Concomitant]
  5. NOREPINEPHRINE BITARTRATE [Concomitant]
  6. CLONAZEPAM [Concomitant]

REACTIONS (6)
  - GASTROINTESTINAL NECROSIS [None]
  - HYPOTHERMIA [None]
  - ILEUS PARALYTIC [None]
  - INTESTINAL ISCHAEMIA [None]
  - SEPTIC SHOCK [None]
  - VASOCONSTRICTION [None]
